FAERS Safety Report 6442872-5 (Version None)
Quarter: 2009Q4

REPORT INFORMATION
  Report Type: 
  Country: None (occurrence: None)
  Receive Date: 20091117
  Receipt Date: 20091106
  Transmission Date: 20100525
  Serious: No
  Sender: FDA-Public Use
  Company Number: US-B.I. PHARMACEUTICALS,INC./RIDGEFIELD-2009-BP-12940BP

PATIENT
  Age: 88 Year
  Sex: Male

DRUGS (6)
  1. FLOMAX [Suspect]
     Dosage: 0.4 MG
     Route: 048
     Dates: start: 20060101
  2. ATENOLOL [Concomitant]
     Indication: HYPERTENSION
  3. LOVASTATIN [Concomitant]
     Indication: BLOOD CHOLESTEROL INCREASED
  4. ASPIRIN [Concomitant]
     Indication: PROPHYLAXIS
  5. LUTEIN [Concomitant]
     Indication: PROPHYLAXIS
  6. MULTIVITAMIN [Concomitant]
     Indication: PROPHYLAXIS

REACTIONS (2)
  - NOCTURIA [None]
  - PRURITUS GENERALISED [None]
